FAERS Safety Report 8529643-0 (Version None)
Quarter: 2012Q3

REPORT INFORMATION
  Report Type: 
  Country: None (occurrence: None)
  Receive Date: 20120723
  Receipt Date: 20120712
  Transmission Date: 20120928
  Serious: Yes (Hospitalization)
  Sender: FDA-Public Use
  Company Number: BE-JNJFOC-20120410888

PATIENT
  Sex: Male

DRUGS (43)
  1. PREDNISOLONE [Suspect]
     Indication: PROSTATE CANCER METASTATIC
     Route: 048
     Dates: start: 20100204
  2. AMOXICILLIN [Concomitant]
     Indication: BRONCHITIS
     Route: 048
     Dates: start: 20120401, end: 20120401
  3. LITICAN [Concomitant]
     Route: 042
     Dates: start: 20120603, end: 20120606
  4. LITICAN [Concomitant]
     Route: 042
     Dates: start: 20120603, end: 20120606
  5. SOLU-CORTEF [Concomitant]
     Indication: LUNG INFECTION
     Route: 042
     Dates: start: 20120606, end: 20120606
  6. ZOLADEX [Concomitant]
     Indication: HORMONE THERAPY
     Route: 058
     Dates: start: 20061201
  7. CALCIUM AND VITAMIN D3 [Concomitant]
     Indication: PROPHYLAXIS
     Route: 048
     Dates: start: 20110418
  8. MONUROL [Concomitant]
     Indication: URINARY TRACT INFECTION
     Dosage: ONCE ONLY
     Route: 048
     Dates: start: 20120401, end: 20120401
  9. ACETAMINOPHEN [Concomitant]
     Route: 042
     Dates: start: 20120514, end: 20120523
  10. ZOLPIDEM TATRATE [Concomitant]
     Route: 048
     Dates: start: 20120605
  11. CLINDAMYCIN HCL [Concomitant]
     Indication: LUNG INFECTION
     Route: 048
     Dates: start: 20120613, end: 20120613
  12. ENOXAPARIN SODIUM [Concomitant]
     Indication: PULMONARY EMBOLISM
     Route: 058
     Dates: start: 20120606, end: 20120614
  13. ZOLPIDEM TATRATE [Concomitant]
     Indication: INSOMNIA
     Route: 048
     Dates: start: 20120515, end: 20120516
  14. VANCOCIN HYDROCHLORIDE [Concomitant]
     Route: 042
     Dates: start: 20120607, end: 20120607
  15. VANCOCIN HYDROCHLORIDE [Concomitant]
     Route: 042
     Dates: start: 20120609, end: 20120612
  16. ABIRATERONE ACETATE [Suspect]
     Route: 048
  17. ABIRATERONE ACETATE [Suspect]
     Indication: PROSTATE CANCER METASTATIC
     Route: 048
     Dates: start: 20100204
  18. ZOMETA [Concomitant]
     Indication: PROSTATE CANCER
     Route: 065
     Dates: start: 20061201
  19. DAFALGAN FORTE [Concomitant]
     Indication: CANCER PAIN
     Route: 048
     Dates: start: 20120301
  20. TRAMADOL HCL [Concomitant]
     Indication: PNEUMOTHORAX
     Route: 042
     Dates: start: 20120515, end: 20120520
  21. LITICAN [Concomitant]
     Route: 042
     Dates: start: 20120515, end: 20120520
  22. LITICAN [Concomitant]
     Indication: NAUSEA
     Route: 042
     Dates: start: 20120515, end: 20120520
  23. VANCOCIN HYDROCHLORIDE [Concomitant]
     Route: 042
     Dates: start: 20120613, end: 20120613
  24. LEVOFLOXACIN [Concomitant]
     Indication: LUNG INFECTION
     Route: 048
     Dates: start: 20120614
  25. RANITIDINE [Concomitant]
     Indication: DYSPEPSIA
     Route: 048
     Dates: start: 20110923
  26. DUOVENT [Concomitant]
     Indication: BRONCHITIS
     Route: 055
     Dates: start: 20120401, end: 20120401
  27. LITICAN [Concomitant]
     Indication: MALAISE
     Route: 042
     Dates: start: 20120604, end: 20120607
  28. LITICAN [Concomitant]
     Indication: VOMITING
     Route: 042
     Dates: start: 20120515, end: 20120520
  29. LITICAN [Concomitant]
     Route: 042
     Dates: start: 20120604, end: 20120607
  30. PIPERACILLIN AND TAZOBACTAM [Concomitant]
     Indication: INFECTION
     Route: 042
     Dates: start: 20120603, end: 20120612
  31. LEVOFLOXACIN [Concomitant]
     Route: 048
     Dates: start: 20120613, end: 20120613
  32. POTASSIUM CHLORIDE [Concomitant]
     Indication: BLOOD POTASSIUM DECREASED
     Route: 042
     Dates: start: 20120605, end: 20120612
  33. LYSOMUCIL [Concomitant]
     Indication: BRONCHITIS
     Route: 048
     Dates: start: 20120401, end: 20120401
  34. VANCOCIN HYDROCHLORIDE [Concomitant]
     Route: 042
     Dates: start: 20120608, end: 20120608
  35. LITICAN [Concomitant]
     Route: 042
     Dates: start: 20120603, end: 20120606
  36. LITICAN [Concomitant]
     Route: 042
     Dates: start: 20120604, end: 20120607
  37. PIPERACILLIN AND TAZOBACTAM [Concomitant]
     Route: 042
     Dates: start: 20120613, end: 20120613
  38. VANCOCIN HYDROCHLORIDE [Concomitant]
     Indication: INFECTION
     Route: 042
     Dates: start: 20120604, end: 20120606
  39. CLINDAMYCIN HCL [Concomitant]
     Route: 048
     Dates: start: 20120614
  40. SOLU-CORTEF [Concomitant]
     Route: 042
     Dates: start: 20120605, end: 20120605
  41. ACETAMINOPHEN [Concomitant]
     Indication: PNEUMOTHORAX
     Route: 042
     Dates: start: 20120606, end: 20120606
  42. ACETAMINOPHEN [Concomitant]
     Route: 042
     Dates: start: 20120611, end: 20120611
  43. OMEPRAZOLE (PRISOLEC) [Concomitant]
     Indication: PROPHYLAXIS
     Route: 042
     Dates: start: 20120604, end: 20120606

REACTIONS (3)
  - MALAISE [None]
  - BACK PAIN [None]
  - PNEUMOTHORAX [None]
